FAERS Safety Report 4807104-X (Version None)
Quarter: 2005Q4

REPORT INFORMATION
  Report Type: 
  Country: None (occurrence: None)
  Receive Date: 20051024
  Receipt Date: 20050518
  Transmission Date: 20060501
  Serious: Yes (Other)
  Sender: FDA-Public Use
  Company Number: SE-GLAXOSMITHKLINE-B0382085A

PATIENT
  Age: 32 Year
  Sex: Male

DRUGS (1)
  1. SEROXAT [Suspect]
     Indication: SOCIAL PHOBIA
     Dosage: 30MG PER DAY
     Route: 048
     Dates: start: 20030101, end: 20050301

REACTIONS (13)
  - ANXIETY [None]
  - DISSOCIATION [None]
  - DIZZINESS [None]
  - DRUG WITHDRAWAL SYNDROME [None]
  - FATIGUE [None]
  - IRRITABILITY [None]
  - MOOD SWINGS [None]
  - MUSCULOSKELETAL STIFFNESS [None]
  - NASOPHARYNGITIS [None]
  - SUICIDAL IDEATION [None]
  - THINKING ABNORMAL [None]
  - VERTIGO [None]
  - VISION BLURRED [None]
